FAERS Safety Report 4814193-5 (Version None)
Quarter: 2005Q4

REPORT INFORMATION
  Report Type: 
  Country: None (occurrence: None)
  Receive Date: 20051028
  Receipt Date: 20051017
  Transmission Date: 20060501
  Serious: Yes (Other)
  Sender: FDA-Public Use
  Company Number: 2005GB02029

PATIENT
  Age: 13310 Day
  Sex: Female

DRUGS (3)
  1. SEROQUEL [Suspect]
     Indication: BIPOLAR DISORDER
     Route: 048
  2. SEROQUEL [Suspect]
     Route: 048
     Dates: start: 20051010
  3. LITHIUM [Concomitant]

REACTIONS (4)
  - DISTURBANCE IN ATTENTION [None]
  - HEADACHE [None]
  - SOMNOLENCE [None]
  - VISION BLURRED [None]
